FAERS Safety Report 9542684 (Version 1)
Quarter: 2013Q3

REPORT INFORMATION
  Report Type: Spontaneous
  Country: US (occurrence: US)
  Receive Date: 20130923
  Receipt Date: 20130923
  Transmission Date: 20140515
  Serious: Yes (Other)
  Sender: FDA-Public Use
  Company Number: US-UPSHER-SMITH LABORATORIES, INC.-12002622

PATIENT
  Sex: Male
  Weight: 58.5 kg

DRUGS (4)
  1. AMANTADINE HYDROCHLORIDE [Suspect]
     Indication: MOVEMENT DISORDER
     Dosage: 100 MG, BID
     Route: 048
     Dates: start: 2012, end: 20121004
  2. LYRICA [Suspect]
     Indication: MUSCULOSKELETAL DISORDER
     Dosage: 75 MG, BID
     Route: 048
     Dates: end: 201306
  3. METOPROLOL [Concomitant]
     Indication: HYPERTENSION
     Dosage: UNK
  4. TAPAZOLE [Concomitant]
     Indication: HYPERTHYROIDISM

REACTIONS (1)
  - Hallucination [Unknown]
